FAERS Safety Report 7793710-X (Version None)
Quarter: 2011Q4

REPORT INFORMATION
  Report Type: 
  Country: None (occurrence: None)
  Receive Date: 20111003
  Receipt Date: 20110922
  Transmission Date: 20120403
  Serious: Yes (Other)
  Sender: FDA-Public Use
  Company Number: US-BAXTER-2011BH027194

PATIENT
  Age: 28 Year
  Sex: Female
  Weight: 64 kg

DRUGS (28)
  1. GAMMAGARD LIQUID [Suspect]
     Indication: THROMBOCYTOPENIA NEONATAL
     Route: 042
     Dates: start: 20110712, end: 20110712
  2. GAMMAGARD LIQUID [Suspect]
     Route: 042
     Dates: start: 20110531, end: 20110531
  3. PREDNISONE [Concomitant]
     Indication: THROMBOCYTOPENIA NEONATAL
     Route: 048
  4. GAMMAGARD LIQUID [Suspect]
     Route: 042
     Dates: start: 20110719, end: 20110719
  5. GAMMAGARD LIQUID [Suspect]
     Route: 042
     Dates: start: 20110712, end: 20110712
  6. GAMMAGARD LIQUID [Suspect]
     Route: 042
     Dates: start: 20110629, end: 20110629
  7. GAMMAGARD LIQUID [Suspect]
     Route: 042
     Dates: start: 20110531, end: 20110531
  8. GAMMAGARD LIQUID [Suspect]
     Route: 042
     Dates: start: 20110706, end: 20110706
  9. GAMMAGARD LIQUID [Suspect]
     Route: 042
     Dates: start: 20110621, end: 20110621
  10. GAMMAGARD LIQUID [Suspect]
     Route: 042
     Dates: start: 20110605, end: 20110605
  11. SODIUM CHLORIDE 0.9% IN PLASTIC CONTAINER [Suspect]
     Indication: PREMEDICATION
     Dates: start: 20110531
  12. PREDNISONE [Concomitant]
     Route: 048
     Dates: start: 20110722
  13. ACETAMINOPHEN [Concomitant]
     Indication: PREMEDICATION
     Route: 048
     Dates: start: 20110531
  14. GAMMAGARD LIQUID [Suspect]
     Route: 042
     Dates: start: 20110712, end: 20110712
  15. GAMMAGARD LIQUID [Suspect]
     Route: 042
     Dates: start: 20110629, end: 20110629
  16. GAMMAGARD LIQUID [Suspect]
     Route: 042
     Dates: start: 20110621, end: 20110621
  17. SODIUM CHLORIDE [Concomitant]
     Indication: HOT FLUSH
     Route: 042
     Dates: start: 20110531
  18. GAMMAGARD LIQUID [Suspect]
     Indication: OFF LABEL USE
     Route: 042
     Dates: start: 20110712, end: 20110712
  19. GAMMAGARD LIQUID [Suspect]
     Route: 042
     Dates: start: 20110719, end: 20110719
  20. PRENATAL VITAMINS [Concomitant]
     Indication: SUPPLEMENTATION THERAPY
     Route: 048
  21. GAMMAGARD LIQUID [Suspect]
     Route: 042
     Dates: start: 20110613, end: 20110613
  22. GAMMAGARD LIQUID [Suspect]
     Route: 042
     Dates: start: 20110605, end: 20110605
  23. GAMMAGARD LIQUID [Suspect]
     Route: 042
     Dates: start: 20110719, end: 20110719
  24. GAMMAGARD LIQUID [Suspect]
     Route: 042
     Dates: start: 20110719, end: 20110719
  25. GAMMAGARD LIQUID [Suspect]
     Route: 042
     Dates: start: 20110706, end: 20110706
  26. GAMMAGARD LIQUID [Suspect]
     Route: 042
     Dates: start: 20110613, end: 20110613
  27. SODIUM CHLORIDE 0.9% IN PLASTIC CONTAINER [Suspect]
     Indication: INTRAVENOUS CATHETER MANAGEMENT
     Dates: start: 20110531
  28. SODIUM CHLORIDE [Concomitant]
     Indication: FLUID REPLACEMENT
     Route: 042
     Dates: start: 20110531

REACTIONS (3)
  - GESTATIONAL DIABETES [None]
  - HAEMOLYTIC ANAEMIA [None]
  - MATERNAL EXPOSURE DURING PREGNANCY [None]
